FAERS Safety Report 13507115 (Version 1)
Quarter: 2017Q2

REPORT INFORMATION
  Report Type: Spontaneous
  Country: US (occurrence: US)
  Receive Date: 20170502
  Receipt Date: 20170502
  Transmission Date: 20170830
  Serious: Yes (Hospitalization)
  Sender: FDA-Public Use
  Company Number: None

PATIENT
  Age: 46 Year
  Sex: Female
  Weight: 53.1 kg

DRUGS (1)
  1. PHENAZOPYRIDINE. [Suspect]
     Active Substance: PHENAZOPYRIDINE
     Indication: CYSTITIS
     Route: 048

REACTIONS (3)
  - Haemolytic anaemia [None]
  - Hypoxia [None]
  - Methaemoglobinaemia [None]

NARRATIVE: CASE EVENT DATE: 20170222
